FAERS Safety Report 11135716 (Version 3)
Quarter: 2015Q2

REPORT INFORMATION
  Report Type: Spontaneous
  Country: HU (occurrence: HU)
  Receive Date: 20150526
  Receipt Date: 20150605
  Transmission Date: 20150821
  Serious: Yes (Death, Hospitalization)
  Sender: FDA-Public Use
  Company Number: HU-PFIZER INC-2015105016

PATIENT
  Age: 60 Year
  Sex: Female

DRUGS (2)
  1. BERES [Concomitant]
  2. SUTENT [Suspect]
     Active Substance: SUNITINIB MALATE
     Indication: CLEAR CELL RENAL CELL CARCINOMA
     Dosage: 50 MG, 1X/DAY (4/2) CYCLIC
     Route: 048
     Dates: start: 20141023, end: 20150322

REACTIONS (10)
  - Cardiac arrest [Fatal]
  - Decreased appetite [Recovering/Resolving]
  - Leukopenia [Not Recovered/Not Resolved]
  - Vomiting [Recovered/Resolved]
  - Stomatitis [Recovering/Resolving]
  - Nausea [Recovered/Resolved]
  - Thrombocytopenia [Not Recovered/Not Resolved]
  - Yellow skin [Recovered/Resolved]
  - Angiopathy [Fatal]
  - Diarrhoea [Recovered/Resolved]

NARRATIVE: CASE EVENT DATE: 201503
